FAERS Safety Report 8648753 (Version 2)
Quarter: 2012Q4

REPORT INFORMATION
  Report Type: 
  Country: DE (occurrence: DE)
  Receive Date: 20120703
  Receipt Date: 20120830
  Transmission Date: 20130627
  Serious: Yes (Other)
  Sender: FDA-Public Use
  Company Number: DE-ELI_LILLY_AND_COMPANY-DE201206007174

PATIENT
  Sex: Male
  Weight: 46 kg

DRUGS (3)
  1. STRATTERA [Suspect]
     Indication: ATTENTION DEFICIT/HYPERACTIVITY DISORDER
     Dosage: 1 DF, UNK
     Route: 048
     Dates: start: 201105
  2. STRATTERA [Suspect]
     Dosage: 35 mg, UNK
     Route: 048
     Dates: start: 201112
  3. STRATTERA [Suspect]
     Dosage: 25 mg, UNK
     Route: 048

REACTIONS (4)
  - Jaundice [Recovered/Resolved]
  - Nausea [Recovered/Resolved]
  - Vomiting [Recovered/Resolved]
  - Blood bilirubin increased [Recovered/Resolved]
